FAERS Safety Report 5846653-2 (Version None)
Quarter: 2008Q3

REPORT INFORMATION
  Report Type: 
  Country: None (occurrence: None)
  Receive Date: 20080815
  Receipt Date: 20080814
  Transmission Date: 20090109
  Serious: Yes (Other)
  Sender: FDA-Public Use
  Company Number: B0528822A

PATIENT
  Age: 30 Year
  Sex: Male

DRUGS (4)
  1. PAXIL [Suspect]
     Indication: MAJOR DEPRESSION
     Dosage: 20MG TWICE PER DAY
     Route: 048
     Dates: start: 20070701, end: 20080523
  2. ETHYL LOFLAZEPATE [Concomitant]
     Indication: MAJOR DEPRESSION
     Dosage: 1MG PER DAY
     Route: 048
     Dates: start: 20071201, end: 20080501
  3. FLUNITRAZEPAM [Concomitant]
     Indication: MAJOR DEPRESSION
     Dosage: 2MG PER DAY
     Route: 048
     Dates: start: 20080501
  4. OLOPATADINE HYDROCHLORIDE [Concomitant]
     Indication: DERMATITIS ATOPIC
     Dosage: 10MG PER DAY
     Route: 048
     Dates: start: 20070701

REACTIONS (3)
  - NIGHTMARE [None]
  - SELF-INJURIOUS IDEATION [None]
  - SUICIDAL IDEATION [None]
